FAERS Safety Report 5010854-6 (Version None)
Quarter: 2006Q2

REPORT INFORMATION
  Report Type: 
  Country: None (occurrence: None)
  Receive Date: 20060525
  Receipt Date: 20060426
  Transmission Date: 20061013
  Serious: Yes (Hospitalization)
  Sender: FDA-Public Use
  Company Number: DE-GLAXOSMITHKLINE-B0423000A

PATIENT
  Sex: Female
  Weight: 62 kg

DRUGS (1)
  1. TOPOTECAN [Suspect]
     Indication: OVARIAN CANCER
     Dosage: 7MG WEEKLY
     Route: 042
     Dates: start: 20060323, end: 20060406

REACTIONS (4)
  - CEREBRAL ISCHAEMIA [None]
  - CONSTIPATION [None]
  - FAECALOMA [None]
  - RETROGRADE AMNESIA [None]
